FAERS Safety Report 8831382 (Version 2)
Quarter: 2012Q4

REPORT INFORMATION
  Report Type: 
  Country: US (occurrence: US)
  Receive Date: 20121009
  Receipt Date: 20121119
  Transmission Date: 20130627
  Serious: Yes (Hospitalization)
  Sender: FDA-Public Use
  Company Number: US-BAYER-2012-103963

PATIENT
  Age: 29 Year
  Sex: Female
  Weight: 113.38 kg

DRUGS (15)
  1. YAZ [Suspect]
     Dosage: UNK
     Dates: start: 20040801, end: 200409
  2. AZITHROMYCIN [Concomitant]
  3. Z-PAK [Concomitant]
  4. ROBITUSSIN WITH CODEINE [Concomitant]
  5. TYLENOL [Concomitant]
  6. CEFTRIAXONE [Concomitant]
     Indication: PNEUMOCOCCAL PNEUMONIA
     Dosage: UNK
     Route: 042
  7. LEVAQUIN [Concomitant]
     Indication: PNEUMOCOCCAL PNEUMONIA
     Dosage: 500 mg, UNK
     Route: 042
  8. LEVAQUIN [Concomitant]
     Indication: PNEUMOCOCCAL PNEUMONIA
     Dosage: 750 mg, daily
     Route: 048
  9. ZITHROMAX [Concomitant]
     Dosage: 500 mg, UNK
  10. VANCOMYCIN [Concomitant]
     Indication: PNEUMOCOCCAL PNEUMONIA
     Route: 042
  11. ZOSYN [Concomitant]
     Route: 042
  12. ERTAPENEM [Concomitant]
     Dosage: 1 g, QD
     Route: 042
  13. ULTRAM [Concomitant]
     Indication: DISCOMFORT
     Dosage: 50 mg, q4-6hr if needed
     Route: 048
  14. HYDROCODONE W/APAP [Concomitant]
     Dosage: 5/500; UNK
  15. GUAIFENESIN/CODEINE [Concomitant]
     Dosage: UNK

REACTIONS (11)
  - Deep vein thrombosis [Recovered/Resolved]
  - Cholecystectomy [None]
  - Cholecystitis chronic [None]
  - Pneumonia [None]
  - Emotional distress [None]
  - Pain [None]
  - Injury [Recovered/Resolved]
  - General physical health deterioration [Recovered/Resolved]
  - Anxiety [None]
  - Anhedonia [None]
  - Pain [Recovered/Resolved]
